FAERS Safety Report 7577353-9 (Version None)
Quarter: 2011Q2

REPORT INFORMATION
  Report Type: 
  Country: None (occurrence: None)
  Receive Date: 20110628
  Receipt Date: 20110125
  Transmission Date: 20111010
  Serious: Yes (Hospitalization)
  Sender: FDA-Public Use
  Company Number: US-BAYER-201041913NA

PATIENT
  Age: 19 Year
  Sex: Female
  Weight: 70.295 kg

DRUGS (14)
  1. DILAUDID [Concomitant]
  2. YASMIN [Suspect]
     Indication: ACNE
  3. DROSPIRENONE AND ETHINYL ESTRADIOL [Suspect]
     Indication: ACNE
  4. NUVARING [Concomitant]
     Dosage: UNK
     Dates: start: 20090101, end: 20090201
  5. NICODERM [Concomitant]
  6. YASMIN [Suspect]
     Indication: CONTRACEPTION
     Route: 048
     Dates: start: 20071001, end: 20081201
  7. YASMIN [Suspect]
     Indication: PREMENSTRUAL SYNDROME
  8. VICODIN [Concomitant]
  9. DROSPIRENONE AND ETHINYL ESTRADIOL [Suspect]
     Indication: PREMENSTRUAL SYNDROME
  10. HEPARIN [Concomitant]
  11. COUMADIN [Concomitant]
  12. CELEBREX [Concomitant]
  13. DROSPIRENONE AND ETHINYL ESTRADIOL [Suspect]
     Indication: CONTRACEPTION
     Route: 048
     Dates: start: 20081201, end: 20090101
  14. NUVARING [Concomitant]
     Dosage: UNK
     Dates: start: 20090302

REACTIONS (2)
  - PULMONARY EMBOLISM [None]
  - CHEST PAIN [None]
